FAERS Safety Report 9281562 (Version 1)
Quarter: 2013Q2

REPORT INFORMATION
  Report Type: Spontaneous
  Country: US (occurrence: US)
  Receive Date: 20130509
  Receipt Date: 20130509
  Transmission Date: 20140414
  Serious: No
  Sender: FDA-Public Use
  Company Number: US-009507513-1304USA017467

PATIENT
  Sex: Female
  Weight: 102.4 kg

DRUGS (6)
  1. VICTRELIS [Suspect]
     Dosage: 800 MG, TID
     Route: 048
  2. PEGASYS [Suspect]
  3. REBETOL [Suspect]
     Route: 048
  4. SUMATRIPTAN [Concomitant]
  5. LEVOTHYROXINE SODIUM [Concomitant]
  6. PROCRIT [Concomitant]

REACTIONS (1)
  - Anaemia [Unknown]
